FAERS Safety Report 6332974-6 (Version None)
Quarter: 2009Q3

REPORT INFORMATION
  Report Type: 
  Country: None (occurrence: None)
  Receive Date: 20090828
  Receipt Date: 20090820
  Transmission Date: 20100115
  Serious: Yes (Other)
  Sender: FDA-Public Use
  Company Number: PHHY2009DK35469

PATIENT
  Sex: Male

DRUGS (1)
  1. RASILEZ [Suspect]
     Dosage: 300 MG, UNK
     Dates: start: 20090525

REACTIONS (3)
  - ALBUMIN URINE PRESENT [None]
  - CREATININE URINE DECREASED [None]
  - URINE ALBUMIN/CREATININE RATIO INCREASED [None]
